FAERS Safety Report 5271016-0 (Version None)
Quarter: 2007Q1

REPORT INFORMATION
  Report Type: 
  Country: None (occurrence: None)
  Receive Date: 20061214
  Receipt Date: 20051028
  Transmission Date: 20070707
  Serious: Yes (Other)
  Sender: FDA-Public Use
  Company Number: 2005135236

PATIENT
  Age: 55 Year
  Sex: Female

DRUGS (7)
  1. BEXTRA [Suspect]
     Indication: ILL-DEFINED DISORDER
  2. PREDNISONE TAB [Concomitant]
  3. PLAQUENIL [Concomitant]
  4. NEXIUM (OESOMEPRAZOLE) [Concomitant]
  5. LOTREL [Concomitant]
  6. WELLBUTRIN SR [Concomitant]
  7. PREMARIN [Concomitant]

REACTIONS (1)
  - MYOCARDIAL INFARCTION [None]
